FAERS Safety Report 24581688 (Version 1)
Quarter: 2024Q4

REPORT INFORMATION
  Report Type: Spontaneous
  Country: US (occurrence: US)
  Receive Date: 20241105
  Receipt Date: 20241105
  Transmission Date: 20250115
  Serious: Yes (Other)
  Sender: BRISTOL-MYERS SQUIBB COMPANY
  Company Number: US-BRISTOL-MYERS SQUIBB COMPANY-2024-172180

PATIENT
  Age: 43 Year
  Sex: Male

DRUGS (1)
  1. ELIQUIS [Suspect]
     Active Substance: APIXABAN
     Indication: Product used for unknown indication
     Dosage: FREQUENCY: TAKE 2 TABS BY MOUTH TWICE A DAY FOR 7 DAYS THEN 1 TABLET TWICE A DAY
     Route: 048

REACTIONS (2)
  - Renal cancer [Unknown]
  - Macule [Not Recovered/Not Resolved]
